FAERS Safety Report 4695173-X (Version None)
Quarter: 2005Q2

REPORT INFORMATION
  Report Type: 
  Country: None (occurrence: None)
  Receive Date: 20050617
  Receipt Date: 20050606
  Transmission Date: 20051028
  Serious: Yes (Hospitalization)
  Sender: FDA-Public Use
  Company Number: 106828ISR

PATIENT
  Age: 66 Year
  Sex: Female

DRUGS (7)
  1. METHOTREXATE [Suspect]
     Dosage: 15 MILLIGRAM INTRATHECAL
     Route: 037
     Dates: start: 20050331
  2. CYTARABINE [Suspect]
     Dosage: 40 MILLIGRAM INTRATHECAL
     Route: 037
     Dates: start: 20050331
  3. MABTHERA (RITUXIMAB) [Suspect]
     Dosage: 550 MILLIGRAM INTRAVENOUS (NOS)
     Route: 042
     Dates: start: 20050330
  4. IMMUNOGLOBULIN HUMAN NORMAL [Suspect]
     Dosage: 30 GRAM INTRAVENOUS (NOS)
     Dates: start: 20050401
  5. CYCLOPHOSPHAMIDE [Suspect]
     Dosage: 1100 MILLIGRAM INTRAVENOUS (NOS)
     Route: 042
     Dates: start: 20050331
  6. DOXORUBICIN [Suspect]
     Dosage: 74 MILLIGRAM INTRAVENOUS (NOS)
     Route: 042
     Dates: start: 20050331
  7. VINDESINE [Suspect]
     Dosage: 2.9 MILLIGRAM INTRAVENOUS (NOS)
     Route: 042
     Dates: start: 20050331

REACTIONS (5)
  - ASTHENIA [None]
  - CEREBELLAR SYNDROME [None]
  - GAIT DISTURBANCE [None]
  - NAUSEA [None]
  - VOMITING [None]
